FAERS Safety Report 17286881 (Version 3)
Quarter: 2020Q3

REPORT INFORMATION
  Report Type: Spontaneous
  Country: US (occurrence: US)
  Receive Date: 20200120
  Receipt Date: 20200710
  Transmission Date: 20201102
  Serious: Yes (Hospitalization, Other)
  Sender: FDA-Public Use
  Company Number: US-ABBVIE-20K-163-3237906-00

PATIENT
  Age: 62 Year
  Sex: Male
  Weight: 65.83 kg

DRUGS (4)
  1. PLAVIX [Concomitant]
     Active Substance: CLOPIDOGREL BISULFATE
     Indication: CEREBROVASCULAR ACCIDENT
  2. GLUCOTROL [Concomitant]
     Active Substance: GLIPIZIDE
     Indication: BLOOD GLUCOSE INCREASED
  3. ASPIRIN. [Concomitant]
     Active Substance: ASPIRIN
     Indication: CEREBROVASCULAR ACCIDENT
  4. MAVYRET [Suspect]
     Active Substance: GLECAPREVIR\PIBRENTASVIR
     Indication: HEPATITIS C
     Route: 048
     Dates: start: 20200114, end: 20200114

REACTIONS (8)
  - Cerebrovascular accident [Recovered/Resolved]
  - Vomiting [Recovering/Resolving]
  - Dizziness [Not Recovered/Not Resolved]
  - Deafness [Recovering/Resolving]
  - Cerebrovascular accident [Unknown]
  - Asthenia [Not Recovered/Not Resolved]
  - Central nervous system vasculitis [Recovering/Resolving]
  - Gait inability [Not Recovered/Not Resolved]

NARRATIVE: CASE EVENT DATE: 202001
